FAERS Safety Report 6794117-4 (Version None)
Quarter: 2010Q2

REPORT INFORMATION
  Report Type: 
  Country: None (occurrence: None)
  Receive Date: 20100624
  Receipt Date: 20090813
  Transmission Date: 20101027
  Serious: Yes (Other)
  Sender: FDA-Public Use
  Company Number: US-PFIZER INC-2009181780

PATIENT
  Sex: Female
  Weight: 58 kg

DRUGS (7)
  1. PROVERA [Suspect]
     Indication: HORMONE REPLACEMENT THERAPY
     Dosage: 2.5 MG, UNK
     Dates: start: 19930101, end: 19960101
  2. OGEN [Suspect]
     Indication: HORMONE REPLACEMENT THERAPY
     Dosage: 2.5 MG, UNK
     Dates: start: 19860101, end: 19930101
  3. AYGESTIN [Suspect]
     Indication: HORMONE REPLACEMENT THERAPY
     Dosage: 5 MG, UNK
     Dates: start: 19860101, end: 19930101
  4. PREMARIN [Suspect]
     Indication: HORMONE REPLACEMENT THERAPY
     Dosage: 0.625 MG, UNK
     Dates: start: 19940101, end: 19960101
  5. PREMPRO [Suspect]
     Indication: HORMONE REPLACEMENT THERAPY
     Dosage: 0.625/2.5 MG
     Dates: start: 19930101, end: 20031001
  6. VIOXX [Concomitant]
     Indication: ARTHRALGIA
     Dosage: 50 MG, UNK
     Dates: start: 20030701, end: 20040701
  7. DITROPAN XL [Concomitant]
     Indication: HYPERTONIC BLADDER
     Dosage: 15 MG, UNK
     Dates: start: 20030101, end: 20040501

REACTIONS (1)
  - BREAST CANCER [None]
